FAERS Safety Report 9063295 (Version 1)
Quarter: 2013Q1

REPORT INFORMATION
  Report Type: Spontaneous
  Country: FR (occurrence: FR)
  Receive Date: 20130131
  Receipt Date: 20130131
  Transmission Date: 20140127
  Serious: Yes (Hospitalization)
  Sender: FDA-Public Use
  Company Number: FR-PFIZER INC-2013035992

PATIENT
  Age: 71 Year
  Sex: Male

DRUGS (1)
  1. FELDENE [Suspect]
     Indication: BONE PAIN
     Dosage: 1 DF, SINGLE
     Route: 048
     Dates: start: 20121005, end: 20121005

REACTIONS (1)
  - Acute generalised exanthematous pustulosis [Recovered/Resolved]
